FAERS Safety Report 17472020 (Version 2)
Quarter: 2020Q1

REPORT INFORMATION
  Report Type: Spontaneous
  Country: JP (occurrence: JP)
  Receive Date: 20200228
  Receipt Date: 20200318
  Transmission Date: 20200409
  Serious: Yes (Hospitalization)
  Sender: FDA-Public Use
  Company Number: JP-TEVA-2020-JP-1193219

PATIENT
  Age: 30 Year
  Sex: Female

DRUGS (3)
  1. HEPARIN [Suspect]
     Active Substance: HEPARIN SODIUM
     Indication: ANTICOAGULANT THERAPY
     Dosage: 10000 IU (INTERNATIONAL UNIT) DAILY; CONTINUOUS INFUSION OF HEPARIN 10,000 UNITS/DAY
     Route: 050
  2. WARFARIN [Suspect]
     Active Substance: WARFARIN
     Indication: ANTICOAGULANT THERAPY
     Dosage: 4 MILLIGRAM DAILY;
     Route: 048
  3. HEPARIN [Suspect]
     Active Substance: HEPARIN SODIUM
     Indication: ANTICOAGULANT THERAPY
     Dosage: 16000 IU (INTERNATIONAL UNIT) DAILY; CONTINUOUS INFUSION OF HEPARIN 16,000 UNITS/DAY
     Route: 050

REACTIONS (3)
  - Maternal exposure during pregnancy [Unknown]
  - Live birth [Unknown]
  - Haematoma [Recovered/Resolved]
